FAERS Safety Report 10609206 (Version 2)
Quarter: 2014Q4

REPORT INFORMATION
  Report Type: Report from Study
  Country: CN (occurrence: CN)
  Receive Date: 20141126
  Receipt Date: 20141126
  Transmission Date: 20150529
  Serious: Yes (Life-Threatening)
  Sender: FDA-Public Use
  Company Number: CN-BRISTOL-MYERS SQUIBB COMPANY-21420955

PATIENT
  Age: 51 Year
  Sex: Female

DRUGS (12)
  1. DEXAMETHASONE SODIUM PHOSPHATE. [Concomitant]
     Active Substance: DEXAMETHASONE SODIUM PHOSPHATE
     Dates: start: 20131211, end: 20140507
  2. COBAMAMIDE [Concomitant]
     Active Substance: COBAMAMIDE
  3. MECOBALAMIN [Concomitant]
     Active Substance: METHYLCOBALAMIN
  4. DIPHENHYDRAMINE HCL [Concomitant]
     Active Substance: DIPHENHYDRAMINE HYDROCHLORIDE
     Dates: start: 20131120, end: 20140507
  5. AZITHROMYCIN [Concomitant]
     Active Substance: AZITHROMYCIN ANHYDROUS
  6. MONTMORILLONITE BEIDELLITIQUE [Concomitant]
  7. PACLITAXEL. [Suspect]
     Active Substance: PACLITAXEL
     Indication: BREAST CANCER
     Dosage: DATE OF LAST DOSE PRIOR TO SAE LL/DEC/2013?16APR14,07MAY14,?20-NOV-2013 - ONGOING
     Route: 041
     Dates: start: 20131120
  8. CIMETIDINE [Concomitant]
     Active Substance: CIMETIDINE
     Dates: start: 20131120, end: 20140507
  9. PERTUZUMAB [Suspect]
     Active Substance: PERTUZUMAB
     Indication: BREAST CANCER
     Dosage: LOADING DOSE 840 MG,CYCLE 1?LAST DOSE-11-DEC-14,15-APR-14,06MAY14-IV?10-DEC-2013 - ONGOING
     Route: 041
     Dates: start: 20131119
  10. TRASTUZUMAB [Suspect]
     Active Substance: TRASTUZUMAB
     Indication: BREAST CANCER
     Dosage: START DATE 11DEC2013?LLDEC2013-L6APR2014-07MAY2014-IV?11-DEC-2013 -ONGOING
     Route: 041
     Dates: start: 20131120
  11. DEXAMETHASONE. [Concomitant]
     Active Substance: DEXAMETHASONE
     Dosage: 25-MAR-2014.
     Dates: start: 20140304, end: 20140416
  12. TROPISETRON HCL [Concomitant]
     Dosage: 11-DEC-2013,01-JAN, 22-JAN,12-FEB, 05-MAR, 26-MAR, 16-APR, 07-MAY-2014.
     Dates: start: 20131120, end: 20140507

REACTIONS (1)
  - Neutrophil count decreased [Recovered/Resolved]

NARRATIVE: CASE EVENT DATE: 20131217
